FAERS Safety Report 17311054 (Version 1)
Quarter: 2020Q1

REPORT INFORMATION
  Report Type: Spontaneous
  Country: US (occurrence: US)
  Receive Date: 20200123
  Receipt Date: 20200123
  Transmission Date: 20200409
  Serious: No
  Sender: FDA-Public Use
  Company Number: US-ROCHE-2365715

PATIENT
  Sex: Female
  Weight: 81.72 kg

DRUGS (1)
  1. RITUXAN [Suspect]
     Active Substance: RITUXIMAB
     Indication: SERPIGINOUS CHOROIDITIS
     Dosage: 6 MONTHS INTERVAL;
     Route: 042

REACTIONS (4)
  - Dyspnoea [Recovered/Resolved]
  - Off label use [Unknown]
  - Rash [Recovered/Resolved]
  - Intentional product use issue [Unknown]
